FAERS Safety Report 12675173 (Version 1)
Quarter: 2016Q3

REPORT INFORMATION
  Report Type: Report from Study
  Country: US (occurrence: US)
  Receive Date: 20160822
  Receipt Date: 20160822
  Transmission Date: 20161109
  Serious: Yes (Other)
  Sender: FDA-Public Use
  Company Number: US-ABBVIE-16K-163-1700319-00

PATIENT
  Age: 61 Year
  Sex: Male

DRUGS (1)
  1. HUMIRA [Suspect]
     Active Substance: ADALIMUMAB
     Indication: RHEUMATOID ARTHRITIS
     Route: 058
     Dates: start: 20151218

REACTIONS (7)
  - Injection site pain [Not Recovered/Not Resolved]
  - Scratch [Recovered/Resolved]
  - Night sweats [Not Recovered/Not Resolved]
  - Limb injury [Recovering/Resolving]
  - Injection site haemorrhage [Not Recovered/Not Resolved]
  - Exostosis [Recovered/Resolved]
  - Respiratory disorder [Not Recovered/Not Resolved]

NARRATIVE: CASE EVENT DATE: 20151218
